FAERS Safety Report 6136423-2 (Version None)
Quarter: 2009Q1

REPORT INFORMATION
  Report Type: 
  Country: None (occurrence: None)
  Receive Date: 20090330
  Receipt Date: 20090327
  Transmission Date: 20090719
  Serious: Yes (Other)
  Sender: FDA-Public Use
  Company Number: NL-ASTRAZENECA-2009AC00952

PATIENT
  Age: 26227 Day
  Sex: Female
  Weight: 61 kg

DRUGS (3)
  1. SEROQUEL [Suspect]
     Indication: SCHIZOPHRENIA
     Route: 048
     Dates: end: 20080919
  2. SEROQUEL [Suspect]
     Dosage: DOSE INCREASED
     Route: 048
     Dates: start: 20080919, end: 20090308
  3. LORAZEPAM [Concomitant]
     Route: 048
     Dates: start: 20081117

REACTIONS (1)
  - LEUKOPENIA [None]
